FAERS Safety Report 14223918 (Version 1)
Quarter: 2017Q4

REPORT INFORMATION
  Report Type: Spontaneous
  Country: US (occurrence: US)
  Receive Date: 20171126
  Receipt Date: 20171126
  Transmission Date: 20180321
  Serious: No
  Sender: FDA-Public Use
  Company Number: PHEH2017US037653

PATIENT
  Sex: Female

DRUGS (3)
  1. DIOVAN HCT [Suspect]
     Active Substance: HYDROCHLOROTHIAZIDE\VALSARTAN
     Indication: HYPERTENSION
     Dosage: UNK (160/25 MG)
     Route: 048
     Dates: end: 201705
  2. DIOVAN HCT [Suspect]
     Active Substance: HYDROCHLOROTHIAZIDE\VALSARTAN
     Dosage: UNK (320/25 MG)
     Route: 048
     Dates: start: 201705, end: 201708
  3. DIOVAN HCT [Suspect]
     Active Substance: HYDROCHLOROTHIAZIDE\VALSARTAN
     Dosage: UNK (160/25 MG)
     Route: 048
     Dates: start: 201708

REACTIONS (1)
  - Blood pressure increased [Unknown]
